FAERS Safety Report 7036886-4 (Version None)
Quarter: 2010Q4

REPORT INFORMATION
  Report Type: 
  Country: None (occurrence: None)
  Receive Date: 20101011
  Receipt Date: 20100928
  Transmission Date: 20110411
  Serious: Yes (Other)
  Sender: FDA-Public Use
  Company Number: PHHY2010DE65007

PATIENT
  Age: 73 Year
  Sex: Female

DRUGS (4)
  1. AREDIA [Suspect]
     Dosage: UNK
     Route: 042
     Dates: start: 20001201, end: 20011101
  2. ZOMETA [Suspect]
     Dosage: UNK
     Dates: start: 20011101, end: 20030901
  3. MELPHALAN HYDROCHLORIDE [Concomitant]
     Dosage: UNK
     Dates: start: 20010101
  4. PREDNISOLON [Concomitant]

REACTIONS (2)
  - OSTEOMYELITIS [None]
  - OSTEONECROSIS [None]
